FAERS Safety Report 7257810-5 (Version None)
Quarter: 2011Q1

REPORT INFORMATION
  Report Type: 
  Country: None (occurrence: None)
  Receive Date: 20110129
  Receipt Date: 20100517
  Transmission Date: 20110831
  Serious: Yes (Hospitalization, Other)
  Sender: FDA-Public Use
  Company Number: US-ABBOTT-10P-163-0642569-00

PATIENT
  Sex: Female
  Weight: 54.48 kg

DRUGS (8)
  1. HUMIRA [Suspect]
     Indication: PSORIASIS
     Route: 058
  2. POTASSIUM [Concomitant]
     Indication: MUSCLE SPASMS
  3. DILTIAZEM [Concomitant]
     Indication: VASOSPASM
  4. PROTONIX [Concomitant]
     Indication: GASTRIC DISORDER
  5. SIMVASTATIN [Concomitant]
     Indication: BLOOD CHOLESTEROL
  6. VITAMINS WITH MINERALS [Concomitant]
     Indication: PRODUCT USED FOR UNKNOWN INDICATION
  7. TRIAMTERENE [Concomitant]
     Indication: FLUID RETENTION
  8. AVISTA [Concomitant]
     Indication: BONE DISORDER

REACTIONS (3)
  - NEOPLASM MALIGNANT [None]
  - ARTHRITIS [None]
  - BONE DENSITY ABNORMAL [None]
